FAERS Safety Report 15976906 (Version 1)
Quarter: 2019Q1

REPORT INFORMATION
  Report Type: Spontaneous
  Country: NO (occurrence: NO)
  Receive Date: 20190218
  Receipt Date: 20190218
  Transmission Date: 20190418
  Serious: Yes (Hospitalization)
  Sender: FDA-Public Use
  Company Number: NO-TEVA-2019-NO-1012445

PATIENT
  Age: 46 Year
  Sex: Female

DRUGS (4)
  1. ANTABUS [Suspect]
     Active Substance: DISULFIRAM
     Indication: ALCOHOLISM
     Dosage: 200 MILLIGRAM DAILY; ADMINISTERED IN THE EVENING. NO ALCHOLCONSUMPTION AFTER 05/DEC/2018, EXCEPT FOR
     Route: 048
     Dates: start: 20181205
  2. PARACETAMOL [Concomitant]
     Active Substance: ACETAMINOPHEN
     Dosage: UP TO 4 GRAMS PER DAY (24 HOURS)
     Dates: start: 201810, end: 20181205
  3. LYRICA [Concomitant]
     Active Substance: PREGABALIN
     Dosage: 150 MILLIGRAM DAILY; IN THE EVENING. USED FOR 2-3 YEARS.
     Route: 048
  4. FLUOXETINE [Concomitant]
     Active Substance: FLUOXETINE HYDROCHLORIDE
     Dosage: 60 MILLIGRAM DAILY; IN THE EVENINGS. USED FOR 2-3 YEARS.
     Route: 048

REACTIONS (1)
  - Hepatitis toxic [Unknown]

NARRATIVE: CASE EVENT DATE: 201901
